FAERS Safety Report 8156222-X (Version None)
Quarter: 2012Q1

REPORT INFORMATION
  Report Type: 
  Country: None (occurrence: None)
  Receive Date: 20120222
  Receipt Date: 20120216
  Transmission Date: 20120608
  Serious: Yes (Death)
  Sender: FDA-Public Use
  Company Number: US-PFIZER INC-2008002962

PATIENT
  Age: 59 Year
  Sex: Female

DRUGS (5)
  1. ATIVAN [Suspect]
     Dosage: UNK
     Route: 048
     Dates: start: 20060101, end: 20060101
  2. AMANTADINE HCL [Suspect]
     Dosage: UNK
     Route: 048
     Dates: start: 20060101, end: 20060101
  3. GABAPENTIN [Suspect]
     Dosage: UNK
     Route: 048
     Dates: start: 20060101, end: 20060101
  4. HALOPERIDOL [Suspect]
     Dosage: UNK
     Route: 048
  5. BUPROPION HCL [Suspect]
     Dosage: UNK
     Route: 048
     Dates: start: 20060101, end: 20060101

REACTIONS (2)
  - INTENTIONAL OVERDOSE [None]
  - COMPLETED SUICIDE [None]
